FAERS Safety Report 9550575 (Version 2)
Quarter: 2014Q2

REPORT INFORMATION
  Report Type: Spontaneous
  Country: US (occurrence: US)
  Receive Date: 20130924
  Receipt Date: 20140402
  Transmission Date: 20141212
  Serious: No
  Sender: FDA-Public Use
  Company Number: US-SANOFI-AVENTIS-2013SA035981

PATIENT
  Age: 50 Year
  Sex: Male
  Weight: 81.64 kg

DRUGS (4)
  1. AUBAGIO [Suspect]
     Indication: MULTIPLE SCLEROSIS
     Route: 048
     Dates: start: 20130124
  2. AUBAGIO [Suspect]
     Indication: MULTIPLE SCLEROSIS
     Route: 048
     Dates: start: 201302
  3. HYDROCODONE [Concomitant]
     Indication: HEADACHE
     Dosage: 10 YEAR AGO DOSE:5 UNIT(S)
     Route: 065
  4. VITAMIN D [Concomitant]
     Route: 065

REACTIONS (10)
  - Pain in jaw [Recovered/Resolved]
  - Contusion [Not Recovered/Not Resolved]
  - Vertigo [Not Recovered/Not Resolved]
  - Dizziness [Not Recovered/Not Resolved]
  - Dysuria [Recovered/Resolved]
  - Pollakiuria [Recovered/Resolved]
  - Pigmentation disorder [Unknown]
  - Purulent discharge [Unknown]
  - Musculoskeletal pain [Not Recovered/Not Resolved]
  - Alopecia [Not Recovered/Not Resolved]
